FAERS Safety Report 4444688-8 (Version None)
Quarter: 2004Q3

REPORT INFORMATION
  Report Type: 
  Country: None (occurrence: None)
  Receive Date: 20040902
  Receipt Date: 20040812
  Transmission Date: 20050211
  Serious: Yes (Hospitalization)
  Sender: FDA-Public Use
  Company Number: US_030292996

PATIENT
  Age: 64 Year
  Sex: Male
  Weight: 83 kg

DRUGS (14)
  1. PEMETREXED [Suspect]
     Indication: PLEURAL MESOTHELIOMA MALIGNANT
     Dosage: 1000 MG/OTHER
     Route: 050
     Dates: start: 20030217, end: 20030217
  2. CISPLATIN [Suspect]
     Indication: MESOTHELIOMA
     Dosage: 150 MG
     Dates: start: 20030217, end: 20030217
  3. FENTANYL [Concomitant]
  4. MORPHINE SULFATE [Concomitant]
  5. ATIVAN [Concomitant]
  6. REGLAN [Concomitant]
  7. DEXAMETHASONE [Concomitant]
  8. FOLIC ACID [Concomitant]
  9. MAGNESIUM OXIDE [Concomitant]
  10. PREVACID (LANSOPRAZOLE0 [Concomitant]
  11. VIOXX [Concomitant]
  12. QUININE [Concomitant]
  13. ZESTRIL [Concomitant]
  14. VITAMIN B-12 [Concomitant]

REACTIONS (13)
  - AGGRESSION [None]
  - AGITATION [None]
  - ANAEMIA [None]
  - BLOOD SODIUM DECREASED [None]
  - CONFUSIONAL STATE [None]
  - DYSARTHRIA [None]
  - GENERAL PHYSICAL HEALTH DETERIORATION [None]
  - METABOLIC ENCEPHALOPATHY [None]
  - NEUTROPENIA [None]
  - REFUSAL OF TREATMENT BY RELATIVE [None]
  - THROMBOCYTOPENIA [None]
  - TOXIC INDUCED ENCEPHALOPATHY [None]
  - WHITE BLOOD CELL COUNT DECREASED [None]
